FAERS Safety Report 10066981 (Version 1)
Quarter: 2014Q2

REPORT INFORMATION
  Report Type: Spontaneous
  Country: GB (occurrence: GB)
  Receive Date: 20140409
  Receipt Date: 20140409
  Transmission Date: 20141212
  Serious: Yes (Other)
  Sender: FDA-Public Use
  Company Number: PHHY2014GB039421

PATIENT
  Age: 18 Year
  Sex: Female

DRUGS (2)
  1. PREDNISOLONE [Suspect]
     Indication: OPTIC NEURITIS
  2. METHYLPREDNISOLONE [Suspect]
     Indication: OPTIC NEURITIS
     Route: 042

REACTIONS (8)
  - Nervous system disorder [Unknown]
  - Retinal detachment [Unknown]
  - Blindness [Unknown]
  - Necrotising herpetic retinopathy [Unknown]
  - Vision blurred [Unknown]
  - Maculopathy [Unknown]
  - Visual impairment [Unknown]
  - Oscillopsia [Unknown]
